FAERS Safety Report 9295169 (Version 1)
Quarter: 2013Q2

REPORT INFORMATION
  Report Type: Spontaneous
  Country: US (occurrence: None)
  Receive Date: 20130516
  Receipt Date: 20130516
  Transmission Date: 20140414
  Serious: Yes (Life-Threatening, Hospitalization, Disabling)
  Sender: FDA-Public Use
  Company Number: None

PATIENT
  Age: 79 Year
  Sex: Female
  Weight: 65.32 kg

DRUGS (1)
  1. LEVOFLOXACIN [Suspect]
     Indication: SINUSITIS
     Route: 048
     Dates: start: 20130321, end: 20130331

REACTIONS (18)
  - Headache [None]
  - Diarrhoea [None]
  - Nausea [None]
  - Dizziness [None]
  - Dyspnoea [None]
  - Panic attack [None]
  - Abnormal behaviour [None]
  - Formication [None]
  - Cognitive disorder [None]
  - Treatment noncompliance [None]
  - Hallucination [None]
  - Tremor [None]
  - Fear [None]
  - Dehydration [None]
  - Atrial fibrillation [None]
  - Heart rate increased [None]
  - Amnesia [None]
  - Confusional state [None]
